FAERS Safety Report 17975047 (Version 2)
Quarter: 2021Q1

REPORT INFORMATION
  Report Type: Spontaneous
  Country: US (occurrence: US)
  Receive Date: 20200702
  Receipt Date: 20210103
  Transmission Date: 20210419
  Serious: No
  Sender: FDA-Public Use
  Company Number: US-SA-2020SA154346

PATIENT

DRUGS (2)
  1. DUPIXENT [Suspect]
     Active Substance: DUPILUMAB
     Dosage: 300 MG, QOW
     Route: 058
     Dates: start: 2020
  2. DUPIXENT [Suspect]
     Active Substance: DUPILUMAB
     Indication: ECZEMA
     Dosage: 300 MG, QOW
     Route: 058
     Dates: start: 202006, end: 2020

REACTIONS (10)
  - Foreign body sensation in eyes [Unknown]
  - Injection site pain [Unknown]
  - Unevaluable event [Not Recovered/Not Resolved]
  - Conjunctivitis allergic [Unknown]
  - Cheilitis [Recovered/Resolved]
  - Abnormal sensation in eye [Unknown]
  - Nail cuticle fissure [Unknown]
  - Eye pruritus [Unknown]
  - Eye discharge [Unknown]
  - Injection site bruising [Recovered/Resolved]

NARRATIVE: CASE EVENT DATE: 2020
